APPROVED DRUG PRODUCT: VEINAMINE 8%
Active Ingredient: AMINO ACIDS; MAGNESIUM CHLORIDE; POTASSIUM ACETATE; POTASSIUM CHLORIDE; SODIUM ACETATE
Strength: 8%;61MG/100ML;211MG/100ML;56MG/100ML;388MG/100ML
Dosage Form/Route: INJECTABLE;INJECTION
Application: N017957 | Product #001
Applicant: HOSPIRA INC
Approved: Approved Prior to Jan 1, 1982 | RLD: No | RS: No | Type: DISCN